FAERS Safety Report 24900304 (Version 1)
Quarter: 2025Q1

REPORT INFORMATION
  Report Type: Spontaneous
  Country: FR (occurrence: FR)
  Receive Date: 20250129
  Receipt Date: 20250129
  Transmission Date: 20250408
  Serious: Yes (Death, Other)
  Sender: BAXTER
  Company Number: None

PATIENT
  Age: 85 Year
  Sex: Male
  Weight: 60 kg

DRUGS (14)
  1. CYCLOPHOSPHAMIDE [Suspect]
     Active Substance: CYCLOPHOSPHAMIDE
     Indication: Microscopic polyangiitis
     Route: 042
     Dates: start: 20240826, end: 20241128
  2. PREDNISONE [Concomitant]
     Active Substance: PREDNISONE
     Indication: Microscopic polyangiitis
     Route: 048
     Dates: start: 20240819, end: 20241205
  3. ATOVAQUONE [Concomitant]
     Active Substance: ATOVAQUONE
     Route: 048
     Dates: start: 20240902, end: 20241205
  4. CHOLECALCIFEROL [Concomitant]
     Active Substance: CHOLECALCIFEROL
     Route: 048
     Dates: start: 20240902, end: 20241205
  5. Calcidose [Concomitant]
     Route: 048
     Dates: start: 20240927, end: 20241205
  6. FOLIC ACID [Concomitant]
     Active Substance: FOLIC ACID
     Route: 048
     Dates: start: 20240902, end: 20241205
  7. FLUTICASONE FUROATE\VILANTEROL TRIFENATATE [Concomitant]
     Active Substance: FLUTICASONE FUROATE\VILANTEROL TRIFENATATE
     Dates: start: 20240902, end: 20241205
  8. FUROSEMIDE [Concomitant]
     Active Substance: FUROSEMIDE
     Route: 048
     Dates: start: 20240902, end: 20241205
  9. ARANESP [Concomitant]
     Active Substance: DARBEPOETIN ALFA
     Route: 058
     Dates: start: 20240909, end: 20241205
  10. ONDANSETRON [Concomitant]
     Active Substance: ONDANSETRON
     Route: 048
     Dates: start: 20240826, end: 20241128
  11. LANSOPRAZOLE [Concomitant]
     Active Substance: LANSOPRAZOLE
     Route: 048
     Dates: start: 20240902, end: 20241205
  12. POLYETHYLENE GLYCOLS [Concomitant]
     Active Substance: POLYETHYLENE GLYCOLS
     Route: 048
     Dates: start: 20240902, end: 20241205
  13. OXAZEPAM [Concomitant]
     Active Substance: OXAZEPAM
     Route: 048
     Dates: start: 20240902, end: 20241205
  14. SERETIDE [Concomitant]
     Active Substance: FLUTICASONE PROPIONATE\SALMETEROL XINAFOATE
     Dates: start: 20240902, end: 20241205

REACTIONS (2)
  - Agranulocytosis [Fatal]
  - Shock [Fatal]

NARRATIVE: CASE EVENT DATE: 20241202
